FAERS Safety Report 11422935 (Version 1)
Quarter: 2015Q3

REPORT INFORMATION
  Report Type: Spontaneous
  Country: US (occurrence: US)
  Receive Date: 20150827
  Receipt Date: 20150827
  Transmission Date: 20151125
  Serious: No
  Sender: FDA-Public Use
  Company Number: US-GE HEALTHCARE MEDICAL DIAGNOSTICS-OPTN-PR-1401S-0003

PATIENT
  Age: 46 Year
  Sex: Female
  Weight: 80.81 kg

DRUGS (21)
  1. OPTISON [Suspect]
     Active Substance: ALBUMIN (HUMAN)
     Indication: FATIGUE
  2. CLONAZEPAM. [Concomitant]
     Active Substance: CLONAZEPAM
  3. ASPIRIN. [Concomitant]
     Active Substance: ASPIRIN
  4. NASONEX [Concomitant]
     Active Substance: MOMETASONE FUROATE
  5. ZOFRAN [Concomitant]
     Active Substance: ONDANSETRON HYDROCHLORIDE
  6. EPITEN [Concomitant]
  7. OPTISON [Suspect]
     Active Substance: ALBUMIN (HUMAN)
     Indication: CHEST DISCOMFORT
  8. TRIAMCINOLONE [Concomitant]
     Active Substance: TRIAMCINOLONE
  9. FLEXERIL [Concomitant]
     Active Substance: CYCLOBENZAPRINE HYDROCHLORIDE
  10. XOPENEX [Concomitant]
     Active Substance: LEVALBUTEROL HYDROCHLORIDE
  11. MAXALT [Concomitant]
     Active Substance: RIZATRIPTAN BENZOATE
  12. VALTRAX [Concomitant]
  13. VALIUM [Concomitant]
     Active Substance: DIAZEPAM
  14. IBUPROFEN. [Concomitant]
     Active Substance: IBUPROFEN
  15. OPTISON [Suspect]
     Active Substance: ALBUMIN (HUMAN)
     Indication: DYSPNOEA
     Route: 042
     Dates: start: 20140121, end: 20140121
  16. PATANOL [Concomitant]
     Active Substance: OLOPATADINE HYDROCHLORIDE
  17. HYDROYCYCLIN [Concomitant]
  18. PHENERGAN [Concomitant]
     Active Substance: PROMETHAZINE HYDROCHLORIDE
  19. ALBUTEROL. [Concomitant]
     Active Substance: ALBUTEROL
  20. PEPCID [Concomitant]
     Active Substance: FAMOTIDINE
  21. OPTISON [Suspect]
     Active Substance: ALBUMIN (HUMAN)
     Indication: DIAGNOSTIC PROCEDURE

REACTIONS (1)
  - Headache [Recovered/Resolved]

NARRATIVE: CASE EVENT DATE: 20140121
